FAERS Safety Report 12059132 (Version 1)
Quarter: 2016Q1

REPORT INFORMATION
  Report Type: Spontaneous
  Country: US (occurrence: None)
  Receive Date: 20160209
  Receipt Date: 20160209
  Transmission Date: 20160526
  Serious: No
  Sender: FDA-Public Use
  Company Number: None

PATIENT
  Age: 34 Year
  Sex: Female
  Weight: 60.78 kg

DRUGS (4)
  1. TYLENOL [Concomitant]
     Active Substance: ACETAMINOPHEN
  2. DULOXETINE. [Suspect]
     Active Substance: DULOXETINE
     Indication: GASTROINTESTINAL PAIN
     Dosage: 1 PILL ONCE DAILY TAKEN BY MOUTH
     Route: 048
     Dates: start: 20150630, end: 20160127
  3. DEXILANT [Concomitant]
     Active Substance: DEXLANSOPRAZOLE
  4. MULTIVITAMIN [Concomitant]
     Active Substance: VITAMINS

REACTIONS (6)
  - Tremor [None]
  - Serotonin syndrome [None]
  - Neuroleptic malignant syndrome [None]
  - Confusional state [None]
  - Night sweats [None]
  - Muscle rigidity [None]

NARRATIVE: CASE EVENT DATE: 20160127
